FAERS Safety Report 18441725 (Version 2)
Quarter: 2020Q4

REPORT INFORMATION
  Report Type: Report from Study
  Country: CA (occurrence: CA)
  Receive Date: 20201029
  Receipt Date: 20201118
  Transmission Date: 20210114
  Serious: Yes (Hospitalization)
  Sender: FDA-Public Use
  Company Number: CA-KARYOPHARM THERAPEUTICS, INC.-2017KPT000123

PATIENT
  Age: 45 Year
  Sex: Female
  Weight: 52 kg

DRUGS (109)
  1. ACETAMINOPHEN. [Concomitant]
     Active Substance: ACETAMINOPHEN
     Indication: CHEST PAIN
  2. ACETAMINOPHEN. [Concomitant]
     Active Substance: ACETAMINOPHEN
     Indication: MUSCULOSKELETAL CHEST PAIN
  3. COLACE [Concomitant]
     Active Substance: DOCUSATE SODIUM
     Indication: CONSTIPATION
     Dosage: 50 MG, QD, PRN
     Route: 048
     Dates: start: 201612, end: 20170226
  4. MORPHINE SULFATE. [Concomitant]
     Active Substance: MORPHINE SULFATE
     Indication: BACK PAIN
     Dosage: 10-20MG EVERY 2 HRS, PRN
     Route: 048
     Dates: start: 20170228
  5. CIPROFLOXACIN HCL [Concomitant]
     Active Substance: CIPROFLOXACIN HYDROCHLORIDE
     Indication: FEBRILE NEUTROPENIA
     Dosage: 500 MG, BID
     Route: 048
     Dates: start: 20170201, end: 20170207
  6. DIMENHYDRINATE. [Concomitant]
     Active Substance: DIMENHYDRINATE
     Indication: NAUSEA
     Dosage: 25-50 MG, QID PRN
     Route: 048
     Dates: start: 20170123
  7. RBC TRANSFUSION [Concomitant]
     Dosage: 1 UNIT,ONCE
     Route: 042
     Dates: start: 20170306, end: 20170306
  8. TAZOCIN [Concomitant]
     Active Substance: PIPERACILLIN SODIUM\TAZOBACTAM SODIUM
     Dosage: 4.5 G, EVERY 6 HOURS
     Route: 042
     Dates: start: 20170305, end: 20170309
  9. MAXERAN [Concomitant]
     Active Substance: METOCLOPRAMIDE HYDROCHLORIDE
     Dosage: 10 MG, PRN, EVERY 8 HRS
     Route: 042
     Dates: start: 20170301
  10. AMOXICILLIN. [Concomitant]
     Active Substance: AMOXICILLIN
     Indication: INFECTION
     Dosage: 500 MG, TID
     Route: 048
     Dates: start: 20170215, end: 20170222
  11. OXYGEN. [Concomitant]
     Active Substance: OXYGEN
     Indication: HYPOXIA
     Dosage: 2 L
     Dates: start: 20170213, end: 20170213
  12. PHOSPHATE                          /01318702/ [Concomitant]
     Active Substance: SODIUM PHOSPHATE
     Indication: HYPOPHOSPHATAEMIA
     Dosage: 500 MG, SINGLE
     Route: 048
     Dates: start: 20170308, end: 20170308
  13. SELINEXOR [Suspect]
     Active Substance: SELINEXOR
     Indication: PLASMA CELL MYELOMA
     Dosage: 60 MG, 2X/WEEK
     Route: 048
     Dates: start: 20170119, end: 20170128
  14. CIPROFLOXACIN HCL [Concomitant]
     Active Substance: CIPROFLOXACIN HYDROCHLORIDE
     Indication: INFECTION
     Dosage: 500 MG, BID
     Route: 048
     Dates: start: 20170225, end: 20170227
  15. DIMENHYDRINATE. [Concomitant]
     Active Substance: DIMENHYDRINATE
     Dosage: 50 MG, Q 4 HOURS, PRN
     Route: 042
     Dates: start: 20170309
  16. MORPHINE SULFATE ER [Concomitant]
     Active Substance: MORPHINE SULFATE
     Indication: BACK PAIN
     Dosage: 45 MG, BID
     Route: 048
     Dates: start: 20170301, end: 20170307
  17. MORPHINE SULFATE ER [Concomitant]
     Active Substance: MORPHINE SULFATE
     Indication: MUSCULOSKELETAL CHEST PAIN
  18. RBC TRANSFUSION [Concomitant]
     Dosage: 2 UNITS,ONCE
     Route: 042
     Dates: start: 20170219, end: 20170219
  19. RBC TRANSFUSION [Concomitant]
     Dosage: 1 UNIT,ONCE
     Route: 042
     Dates: start: 20170227, end: 20170227
  20. PLATELETS [Concomitant]
     Active Substance: HUMAN PLATELET, ALLOGENIC
     Indication: THROMBOCYTOPENIA
     Dosage: 1 UNITS, ONCE
     Route: 042
     Dates: start: 20170208, end: 20170208
  21. PLATELETS [Concomitant]
     Active Substance: HUMAN PLATELET, ALLOGENIC
     Dosage: 1 UNITS, ONCE
     Route: 042
     Dates: start: 20170225, end: 20170225
  22. STEM CELL BOOST [Concomitant]
     Indication: PANCYTOPENIA
     Dosage: 110.7 ML, SINGLE
     Route: 042
     Dates: start: 20170217, end: 20170217
  23. 0.9% SODIUM CHLORIDE INFUSION [Concomitant]
     Indication: ELECTROLYTE SUBSTITUTION THERAPY
     Dosage: 1000 ML, CONTINUOUS
     Route: 042
     Dates: start: 20170217, end: 20170219
  24. TYLENOL [Concomitant]
     Active Substance: ACETAMINOPHEN
     Indication: FEBRILE NEUTROPENIA
     Dosage: 650 MG, SINGLE
     Route: 048
     Dates: start: 20170227, end: 20170227
  25. DEXAMETHASONE. [Suspect]
     Active Substance: DEXAMETHASONE
     Indication: PLASMA CELL MYELOMA
     Dosage: 20 MG, 2X/WEEK
     Dates: start: 20170119
  26. MORPHINE SULFATE. [Concomitant]
     Active Substance: MORPHINE SULFATE
     Indication: TOOTHACHE
  27. MORPHINE SULFATE ER [Concomitant]
     Active Substance: MORPHINE SULFATE
     Indication: HEADACHE
     Dosage: 30 MG, BID
     Route: 048
     Dates: start: 20170119
  28. PLATELETS [Concomitant]
     Active Substance: HUMAN PLATELET, ALLOGENIC
     Dosage: 1 UNITS, ONCE
     Route: 042
     Dates: start: 20170219, end: 20170219
  29. PLATELETS [Concomitant]
     Active Substance: HUMAN PLATELET, ALLOGENIC
     Dosage: 1 UNITS, ONCE
     Route: 042
     Dates: start: 20170309, end: 20170309
  30. SOLU-MEDROL [Concomitant]
     Active Substance: METHYLPREDNISOLONE SODIUM SUCCINATE
     Indication: HEADACHE
     Dosage: 1000 MG, QD
     Route: 042
     Dates: start: 20170222, end: 20170225
  31. DEXAMETHASONE. [Concomitant]
     Active Substance: DEXAMETHASONE
     Indication: DIPLOPIA
     Dosage: 20 MG, QD
     Route: 042
     Dates: start: 20170218, end: 20170219
  32. DIPHENHYDRAMINE. [Concomitant]
     Active Substance: DIPHENHYDRAMINE
     Indication: PREMEDICATION
     Dosage: 50 MG, SINGLE
     Route: 042
     Dates: start: 20170217, end: 20170217
  33. LORAZEPAM. [Concomitant]
     Active Substance: LORAZEPAM
     Indication: PREMEDICATION
     Dosage: 1 MG, SINGLE
     Route: 060
     Dates: start: 20170217, end: 20170217
  34. 0.9% SODIUM CHLORIDE INFUSION [Concomitant]
     Indication: HYPOTENSION
     Dosage: 500 ML, ONCE, BOLUS
     Route: 042
     Dates: start: 20170305, end: 20170305
  35. 0.9% SODIUM CHLORIDE INFUSION [Concomitant]
     Dosage: 500 ML, ONCE, AT 100ML/HR
     Route: 042
     Dates: start: 20170305, end: 20170305
  36. PHYTONADIONE LIQUID [Concomitant]
     Indication: ACTIVATED PARTIAL THROMBOPLASTIN TIME PROLONGED
     Dosage: 5 MG, QD
     Route: 048
     Dates: start: 20170301, end: 20170302
  37. KCL [Concomitant]
     Active Substance: POTASSIUM CHLORIDE
     Indication: HYPOKALAEMIA
     Dosage: 3000 MG, QD
     Route: 048
     Dates: start: 20170227, end: 20170228
  38. MAGNESIUM SULFATE. [Concomitant]
     Active Substance: MAGNESIUM SULFATE
     Indication: HYPOKALAEMIA
     Dosage: 2 G, SINGLE
     Route: 042
     Dates: start: 20170227, end: 20170227
  39. ALLOPURINOL. [Concomitant]
     Active Substance: ALLOPURINOL
     Indication: TUMOUR LYSIS SYNDROME
     Dosage: 300 MG, SINGLE
     Route: 048
     Dates: start: 20170308, end: 20170308
  40. ASPIRIN. [Concomitant]
     Active Substance: ASPIRIN
     Indication: THROMBOSIS PROPHYLAXIS
     Dosage: 81 MG, QD
     Route: 048
     Dates: start: 2015
  41. MORPHINE SULFATE. [Concomitant]
     Active Substance: MORPHINE SULFATE
     Indication: HEADACHE
     Dosage: 1 TO 2 TABLETS, QID
     Route: 048
     Dates: start: 201612
  42. POLYETHYLENE GLYCOL 3350. [Concomitant]
     Active Substance: POLYETHYLENE GLYCOL 3350
     Indication: CONSTIPATION
     Dosage: 18 G, QD, PRN
     Dates: start: 201612
  43. DIMENHYDRINATE. [Concomitant]
     Active Substance: DIMENHYDRINATE
     Dosage: 50 MG, ONCE
     Route: 042
     Dates: start: 20170306, end: 20170306
  44. NEUPOGEN [Concomitant]
     Active Substance: FILGRASTIM
     Indication: FEBRILE NEUTROPENIA
     Dosage: 300 MCG, QD
     Route: 058
     Dates: start: 20170201, end: 20170207
  45. DEXAMETHASONE. [Concomitant]
     Active Substance: DEXAMETHASONE
     Indication: VISION BLURRED
     Dosage: 40 MG, QD
     Route: 048
     Dates: start: 20170113, end: 20170116
  46. DEXAMETHASONE. [Concomitant]
     Active Substance: DEXAMETHASONE
     Dosage: 4 MG, BID
     Route: 048
     Dates: start: 20170301
  47. HYDROCORTISONE SODIUM SUCCINATE [Concomitant]
     Active Substance: HYDROCORTISONE SODIUM SUCCINATE
     Indication: PREMEDICATION
     Dosage: 250 MG, SINGLE
     Route: 042
     Dates: start: 20170217, end: 20170217
  48. TAZOCIN [Concomitant]
     Active Substance: PIPERACILLIN SODIUM\TAZOBACTAM SODIUM
     Dosage: 3.375 G, EVERY 6 HOURS
     Route: 042
     Dates: start: 20170227, end: 20170228
  49. TAZOCIN [Concomitant]
     Active Substance: PIPERACILLIN SODIUM\TAZOBACTAM SODIUM
     Dosage: 3.375 G, SINGLE
     Route: 042
     Dates: start: 20170305, end: 20170305
  50. KCL [Concomitant]
     Active Substance: POTASSIUM CHLORIDE
     Dosage: 1000 ML, SINGLE
     Route: 048
     Dates: start: 20170309, end: 20170309
  51. MORPHINE [Concomitant]
     Active Substance: MORPHINE
     Indication: HEADACHE
     Dosage: 1-5 MG, Q1H,PRN
     Route: 042
     Dates: start: 20170309, end: 20170314
  52. ZOMETA [Concomitant]
     Active Substance: ZOLEDRONIC ACID
     Indication: HYPERCALCAEMIA
     Dosage: 4 MG, SINGLE
     Route: 042
     Dates: start: 20170303, end: 20170303
  53. COLACE [Concomitant]
     Active Substance: DOCUSATE SODIUM
     Dosage: 100 MG, BID
     Route: 048
     Dates: start: 20170227
  54. MORPHINE SULFATE. [Concomitant]
     Active Substance: MORPHINE SULFATE
     Indication: CHEST PAIN
  55. METOCLOPRAMIDE HCL [Concomitant]
     Active Substance: METOCLOPRAMIDE HYDROCHLORIDE
     Indication: VOMITING
  56. MORPHINE SULFATE ER [Concomitant]
     Active Substance: MORPHINE SULFATE
     Indication: TOOTHACHE
  57. NEULASTA [Concomitant]
     Active Substance: PEGFILGRASTIM
     Indication: FEBRILE NEUTROPENIA
     Dosage: 0.6 ML, WEEKLY
     Route: 058
     Dates: start: 20170208
  58. RBC TRANSFUSION [Concomitant]
     Indication: ANAEMIA
     Dosage: 2 UNITS,ONCE
     Route: 042
     Dates: start: 20170206, end: 20170206
  59. PLATELETS [Concomitant]
     Active Substance: HUMAN PLATELET, ALLOGENIC
     Dosage: 1 UNITS, ONCE
     Route: 042
     Dates: start: 20170228, end: 20170228
  60. PLATELETS [Concomitant]
     Active Substance: HUMAN PLATELET, ALLOGENIC
     Dosage: 1 UNITS, ONCE
     Route: 042
     Dates: start: 20170304, end: 20170304
  61. DEXAMETHASONE. [Concomitant]
     Active Substance: DEXAMETHASONE
     Indication: PLASMA CELL MYELOMA
     Dosage: 8 MG, QD
     Route: 048
     Dates: start: 20170227, end: 20170227
  62. NORMAL SALINE [Concomitant]
     Active Substance: SODIUM CHLORIDE
     Indication: HYPOTENSION
     Dosage: 1000 ML, ONCE
     Route: 042
     Dates: start: 20170213, end: 20170213
  63. MANNITOL. [Concomitant]
     Active Substance: MANNITOL
     Indication: PREMEDICATION
     Dosage: 12.5 G, SINGLE
     Route: 042
     Dates: start: 20170217, end: 20170217
  64. K-DUR [Concomitant]
     Active Substance: POTASSIUM CHLORIDE
     Indication: HYPOKALAEMIA
     Dosage: 1500 MG, TID
     Route: 048
     Dates: start: 20170219, end: 20170219
  65. KCL [Concomitant]
     Active Substance: POTASSIUM CHLORIDE
     Dosage: 10 MMOL, SINGLE
     Route: 042
     Dates: start: 20170309, end: 20170309
  66. TRANSEXAMIC ACID [Concomitant]
     Active Substance: TRANEXAMIC ACID
     Indication: EPISTAXIS
     Dosage: UNK, SINGLE
     Route: 045
     Dates: start: 20170309, end: 20170309
  67. MORPHINE SULFATE. [Concomitant]
     Active Substance: MORPHINE SULFATE
     Indication: PAIN IN JAW
  68. ONDANSETRON [Concomitant]
     Active Substance: ONDANSETRON
     Indication: NAUSEA
     Dosage: 8 MG, TID, PRN
     Route: 048
     Dates: start: 20170119
  69. ONDANSETRON [Concomitant]
     Active Substance: ONDANSETRON
     Indication: VOMITING
     Dosage: 8 MG, SINGLE
     Route: 042
     Dates: start: 20170301, end: 20170301
  70. NEUPOGEN [Concomitant]
     Active Substance: FILGRASTIM
     Dosage: 300 MCG, QD
     Route: 058
     Dates: start: 20170227
  71. RBC TRANSFUSION [Concomitant]
     Dosage: 2 UNITS,ONCE
     Route: 042
     Dates: start: 20170213, end: 20170213
  72. RBC TRANSFUSION [Concomitant]
     Dosage: 1 UNIT,ONCE
     Route: 042
     Dates: start: 20170304, end: 20170304
  73. SOLU-MEDROL [Concomitant]
     Active Substance: METHYLPREDNISOLONE SODIUM SUCCINATE
     Indication: NON-CARDIAC CHEST PAIN
     Dosage: 1000 MG, QD
     Route: 058
     Dates: start: 20170105, end: 20170106
  74. SODIUM BICARBONATE 8.4% [Concomitant]
     Active Substance: SODIUM BICARBONATE
     Indication: PREMEDICATION
     Dosage: 50 ML, SINGLE
     Route: 042
     Dates: start: 20170217, end: 20170217
  75. TAZOCIN [Concomitant]
     Active Substance: PIPERACILLIN SODIUM\TAZOBACTAM SODIUM
     Indication: FEBRILE NEUTROPENIA
     Dosage: 3.375 G, EVERY 8 HOURS
     Route: 042
     Dates: start: 20170217, end: 20170219
  76. TYLENOL [Concomitant]
     Active Substance: ACETAMINOPHEN
     Dosage: 650 MG, PRN, EVERY 4 HRS
     Route: 048
     Dates: start: 20170228
  77. KEFLEX [Concomitant]
     Active Substance: CEPHALEXIN
     Indication: FEBRILE NEUTROPENIA
     Dosage: 500 MG, QID
     Route: 048
     Dates: start: 20170301
  78. PHYTONADIONE LIQUID [Concomitant]
     Dosage: 5 MG, ONCE
     Route: 048
     Dates: start: 20170309, end: 20170309
  79. SODIUM PHOSPHATE [Concomitant]
     Active Substance: SODIUM PHOSPHATE
     Indication: HYPOPHOSPHATAEMIA
     Dosage: 21 MMOL, SINGLE
     Route: 042
     Dates: start: 20170307, end: 20170307
  80. SODIUM PHOSPHATE [Concomitant]
     Active Substance: SODIUM PHOSPHATE
     Dosage: 21 MMOL, SINGLE
     Route: 042
     Dates: start: 20170309, end: 20170309
  81. POMALIDOMIDE [Suspect]
     Active Substance: POMALIDOMIDE
     Indication: PLASMA CELL MYELOMA
     Dosage: 3 MG, QD
     Dates: start: 20170119
  82. ACETAMINOPHEN. [Concomitant]
     Active Substance: ACETAMINOPHEN
     Indication: BACK PAIN
  83. ACETAMINOPHEN. [Concomitant]
     Active Substance: ACETAMINOPHEN
     Indication: PAIN IN JAW
  84. ACETAMINOPHEN. [Concomitant]
     Active Substance: ACETAMINOPHEN
     Indication: TOOTHACHE
  85. MORPHINE SULFATE ER [Concomitant]
     Active Substance: MORPHINE SULFATE
     Indication: CHEST PAIN
     Dosage: 30 MG, BID
     Route: 048
     Dates: start: 20170307, end: 20170314
  86. ONDANSETRON [Concomitant]
     Active Substance: ONDANSETRON
     Dosage: 8 MG, ONCE
     Route: 042
     Dates: start: 20170305, end: 20170305
  87. ONDANSETRON [Concomitant]
     Active Substance: ONDANSETRON
     Dosage: 8 MG, Q6HRS
     Route: 042
     Dates: start: 20170308
  88. PLATELETS [Concomitant]
     Active Substance: HUMAN PLATELET, ALLOGENIC
     Dosage: 1 UNITS, ONCE
     Route: 042
     Dates: start: 20170213, end: 20170213
  89. PLATELETS [Concomitant]
     Active Substance: HUMAN PLATELET, ALLOGENIC
     Dosage: 1 UNITS, ONCE
     Route: 042
     Dates: start: 20170306, end: 20170306
  90. SOLU-MEDROL [Concomitant]
     Active Substance: METHYLPREDNISOLONE SODIUM SUCCINATE
     Indication: PLASMA CELL MYELOMA
  91. NORMAL SALINE [Concomitant]
     Active Substance: SODIUM CHLORIDE
     Indication: PREMEDICATION
     Dosage: 1000 ML, ONCE
     Route: 042
     Dates: start: 20170217, end: 20170217
  92. MAXERAN [Concomitant]
     Active Substance: METOCLOPRAMIDE HYDROCHLORIDE
     Indication: PROPHYLAXIS OF NAUSEA AND VOMITING
     Dosage: 10 MG, SINGLE
     Route: 048
     Dates: start: 20170227, end: 20170227
  93. KCL [Concomitant]
     Active Substance: POTASSIUM CHLORIDE
     Dosage: 3000 MG, SINGLE
     Route: 048
     Dates: start: 20170309, end: 20170309
  94. ACETAMINOPHEN. [Concomitant]
     Active Substance: ACETAMINOPHEN
     Indication: HEADACHE
     Dosage: 500-1000 MG, QID PRN
     Route: 048
     Dates: start: 2014
  95. MORPHINE SULFATE. [Concomitant]
     Active Substance: MORPHINE SULFATE
     Indication: MUSCULOSKELETAL CHEST PAIN
  96. SENNA                              /00142201/ [Concomitant]
     Active Substance: SENNA LEAF
     Indication: CONSTIPATION
     Dosage: 1 DF, QD, PRN
     Route: 048
     Dates: start: 201612
  97. VALACYCLOVIR HCL [Concomitant]
     Active Substance: VALACYCLOVIR HYDROCHLORIDE
     Indication: HERPES ZOSTER
     Dosage: 500 MG, QD
     Route: 048
     Dates: start: 2015
  98. MAXALT [Concomitant]
     Active Substance: RIZATRIPTAN BENZOATE
     Indication: MIGRAINE
     Dosage: 5 MG, PRN
     Route: 048
     Dates: start: 2015
  99. METOCLOPRAMIDE HCL [Concomitant]
     Active Substance: METOCLOPRAMIDE HYDROCHLORIDE
     Indication: NAUSEA
     Dosage: 5 MG, TID
     Route: 048
     Dates: start: 20170125
  100. MORPHINE SULFATE ER [Concomitant]
     Active Substance: MORPHINE SULFATE
     Indication: PAIN IN JAW
  101. RBC TRANSFUSION [Concomitant]
     Dosage: 1 UNIT,ONCE
     Route: 042
     Dates: start: 20170309, end: 20170309
  102. TAZOCIN [Concomitant]
     Active Substance: PIPERACILLIN SODIUM\TAZOBACTAM SODIUM
     Dosage: 4.5 G, EVERY 6 HOURS
     Route: 042
     Dates: start: 20170228, end: 20170301
  103. MAXERAN [Concomitant]
     Active Substance: METOCLOPRAMIDE HYDROCHLORIDE
     Indication: NAUSEA
     Dosage: 10 MG, SINGLE
     Route: 048
     Dates: start: 20170218, end: 20170218
  104. 0.9% SODIUM CHLORIDE INFUSION [Concomitant]
     Dosage: 75-250 ML/HR, CONTINUOUS
     Route: 042
     Dates: start: 20170305, end: 20170307
  105. AMOXICILLIN. [Concomitant]
     Active Substance: AMOXICILLIN
     Indication: FEBRILE NEUTROPENIA
     Dosage: 500 MG, TID
     Route: 048
     Dates: start: 20170225, end: 20170227
  106. PHYTONADIONE LIQUID [Concomitant]
     Dosage: 10 MG, ONCE
     Route: 048
     Dates: start: 20170228, end: 20170228
  107. KCL [Concomitant]
     Active Substance: POTASSIUM CHLORIDE
     Dosage: 1000 ML, SINGLE
     Route: 048
     Dates: start: 20170307, end: 20170307
  108. VANCOMYCIN [Concomitant]
     Active Substance: VANCOMYCIN
     Indication: FEBRILE NEUTROPENIA
     Dosage: 1250 MG, BID
     Route: 042
     Dates: start: 20170228, end: 20170228
  109. LAX-A-DAY (PEG 3350) [Concomitant]
     Indication: CONSTIPATION
     Dosage: 17 G, QD
     Route: 048
     Dates: start: 20170302

REACTIONS (1)
  - Headache [Not Recovered/Not Resolved]

NARRATIVE: CASE EVENT DATE: 20170227
